FAERS Safety Report 9338273 (Version 1)
Quarter: 2013Q2

REPORT INFORMATION
  Report Type: Spontaneous
  Country: US (occurrence: None)
  Receive Date: 20130605
  Receipt Date: 20130605
  Transmission Date: 20140414
  Serious: Yes (Hospitalization)
  Sender: FDA-Public Use
  Company Number: None

PATIENT
  Age: 78 Year
  Sex: Female
  Weight: 99.4 kg

DRUGS (5)
  1. CYCLOPHOSPHAMIDE [Suspect]
  2. DOXORUBICIN HYDROCHLORIDE [Suspect]
  3. PREDNISONE [Suspect]
  4. RITUXIMAB [Suspect]
  5. VINCRISTINE SULFATE [Suspect]

REACTIONS (1)
  - Acute myeloid leukaemia [None]
